FAERS Safety Report 11217799 (Version 4)
Quarter: 2016Q1

REPORT INFORMATION
  Report Type: Report from Study
  Country: GB (occurrence: GB)
  Receive Date: 20150625
  Receipt Date: 20160209
  Transmission Date: 20160525
  Serious: Yes (Other)
  Sender: FDA-Public Use
  Company Number: GB-ROCHE-1598478

PATIENT
  Age: 59 Year
  Sex: Female

DRUGS (6)
  1. LISINOPRIL. [Concomitant]
     Active Substance: LISINOPRIL
     Dosage: ONGOING
     Route: 065
     Dates: start: 20100209
  2. CLOPIDOGREL [Concomitant]
     Active Substance: CLOPIDOGREL BISULFATE
  3. RANIBIZUMAB [Suspect]
     Active Substance: RANIBIZUMAB
     Route: 050
     Dates: start: 20141205
  4. IVABRADINE [Concomitant]
     Active Substance: IVABRADINE
  5. RANIBIZUMAB [Suspect]
     Active Substance: RANIBIZUMAB
     Indication: NEOVASCULAR AGE-RELATED MACULAR DEGENERATION
     Route: 050
     Dates: start: 20130812
  6. NOVORAPID [Concomitant]
     Active Substance: INSULIN ASPART
     Dosage: ONGOING
     Route: 065
     Dates: start: 20050506

REACTIONS (6)
  - Ear infection [Unknown]
  - Nasal dryness [Unknown]
  - Candida infection [Unknown]
  - Respiratory tract infection [Recovered/Resolved]
  - Epistaxis [Unknown]
  - Cerebral ischaemia [Recovered/Resolved with Sequelae]

NARRATIVE: CASE EVENT DATE: 20141112
